FAERS Safety Report 6751132-4 (Version None)
Quarter: 2010Q2

REPORT INFORMATION
  Report Type: 
  Country: None (occurrence: None)
  Receive Date: 20100528
  Receipt Date: 20100517
  Transmission Date: 20101027
  Serious: Yes (Hospitalization)
  Sender: FDA-Public Use
  Company Number: LTI2010A00086

PATIENT
  Age: 58 Year
  Sex: Male

DRUGS (4)
  1. ACTOS [Suspect]
     Indication: TYPE 2 DIABETES MELLITUS
     Dosage: 15 MG (15 MG, 1 IN 1 D) ORAL
     Route: 048
     Dates: start: 20100312, end: 20100401
  2. XELEVIA (SITAGLIPTIN) [Concomitant]
  3. STAGID (METFORMIN EMBONATE) [Concomitant]
  4. KETOPROFEN [Concomitant]

REACTIONS (5)
  - MONOPARESIS [None]
  - MUSCLE FATIGUE [None]
  - PARAESTHESIA [None]
  - RHINOTRACHEITIS [None]
  - VIRAL INFECTION [None]
